FAERS Safety Report 6233884-5 (Version None)
Quarter: 2009Q2

REPORT INFORMATION
  Report Type: 
  Country: None (occurrence: None)
  Receive Date: 20090618
  Receipt Date: 20070613
  Transmission Date: 20091009
  Serious: Yes (Other)
  Sender: FDA-Public Use
  Company Number: US-ASTRAZENECA-2006UW23941

PATIENT
  Age: 12419 Day
  Sex: Male
  Weight: 166.9 kg

DRUGS (21)
  1. SEROQUEL [Suspect]
     Indication: SCHIZOPHRENIA
     Route: 048
     Dates: start: 20020502, end: 20020601
  2. SEROQUEL [Suspect]
     Indication: BIPOLAR DISORDER
     Route: 048
     Dates: start: 20020502, end: 20020601
  3. SEROQUEL [Suspect]
     Indication: DEPRESSION
     Route: 048
     Dates: start: 20020502, end: 20020601
  4. SEROQUEL [Suspect]
     Route: 048
     Dates: start: 20020502
  5. SEROQUEL [Suspect]
     Route: 048
     Dates: start: 20020502
  6. SEROQUEL [Suspect]
     Route: 048
     Dates: start: 20020502
  7. ABILIFY [Concomitant]
  8. GEODON [Concomitant]
  9. RISPERDAL [Concomitant]
  10. ZYPREXA [Concomitant]
  11. ZOCOR [Concomitant]
     Dates: start: 20040406
  12. DIAZEPAM [Concomitant]
     Dates: start: 20020523
  13. TOPAMAX [Concomitant]
     Dates: start: 20020511
  14. TRAZODONE HCL [Concomitant]
     Dates: start: 20020528
  15. CAPTOPRIL [Concomitant]
     Dates: start: 20040720
  16. EFFEXOR [Concomitant]
     Dates: start: 20020511
  17. ACCUPRIL [Concomitant]
     Dates: start: 20020507
  18. BENZTROPINE [Concomitant]
     Dates: start: 20020523
  19. CARISOPRODOL [Concomitant]
     Dates: start: 20020507
  20. LEXAPRO [Concomitant]
     Dosage: STRENGTH - 10 MG, 20 MG
     Route: 048
     Dates: start: 20030116
  21. NEURONTIN [Concomitant]
     Dates: start: 20040723

REACTIONS (5)
  - DIABETES MELLITUS [None]
  - DIABETIC NEUROPATHY [None]
  - GLYCOSURIA [None]
  - HYPERGLYCAEMIA [None]
  - TYPE 2 DIABETES MELLITUS [None]
